FAERS Safety Report 11249222 (Version 1)
Quarter: 2015Q3

REPORT INFORMATION
  Report Type: Spontaneous
  Country: US (occurrence: US)
  Receive Date: 20150708
  Receipt Date: 20150708
  Transmission Date: 20151125
  Serious: No
  Sender: FDA-Public Use
  Company Number: US-ELI_LILLY_AND_COMPANY-US200905000211

PATIENT
  Sex: Female

DRUGS (2)
  1. HYDROMORPHONE [Concomitant]
     Active Substance: HYDROMORPHONE
  2. ALIMTA [Suspect]
     Active Substance: PEMETREXED DISODIUM
     Dates: start: 20090428

REACTIONS (2)
  - Somnolence [Recovered/Resolved]
  - Dizziness [Recovered/Resolved]

NARRATIVE: CASE EVENT DATE: 20090428
